FAERS Safety Report 12116840 (Version 1)
Quarter: 2016Q1

REPORT INFORMATION
  Report Type: Spontaneous
  Country: US (occurrence: US)
  Receive Date: 20160225
  Receipt Date: 20160225
  Transmission Date: 20160526
  Serious: No
  Sender: FDA-Public Use
  Company Number: US-ELI_LILLY_AND_COMPANY-US201601009766

PATIENT
  Sex: Male

DRUGS (2)
  1. HUMALOG [Suspect]
     Active Substance: INSULIN LISPRO
     Indication: TYPE 1 DIABETES MELLITUS
     Dosage: UP TO 100 U, QD
     Route: 058
     Dates: start: 2011
  2. HUMALOG [Suspect]
     Active Substance: INSULIN LISPRO
     Dosage: UP TO 100 U, QD
     Route: 058
     Dates: start: 2011

REACTIONS (3)
  - Drug ineffective [Unknown]
  - Feeling abnormal [Unknown]
  - Blood glucose increased [Recovering/Resolving]

NARRATIVE: CASE EVENT DATE: 201601
